FAERS Safety Report 8176042-X (Version None)
Quarter: 2012Q1

REPORT INFORMATION
  Report Type: 
  Country: None (occurrence: None)
  Receive Date: 20120301
  Receipt Date: 20120228
  Transmission Date: 20120608
  Serious: Yes (Other)
  Sender: FDA-Public Use
  Company Number: US-PFIZER INC-2012053257

PATIENT
  Sex: Female
  Weight: 73.469 kg

DRUGS (5)
  1. CHANTIX [Suspect]
     Indication: SMOKING CESSATION THERAPY
     Dosage: 0.5 MG, 1X/DAY
     Route: 048
     Dates: start: 20120101, end: 20120101
  2. CHANTIX [Suspect]
     Dosage: 1 MG, 2X/DAY
     Route: 048
     Dates: start: 20120101, end: 20120101
  3. CHANTIX [Suspect]
     Dosage: 1 MG, 1X/DAY
     Route: 048
     Dates: start: 20120101
  4. PAXIL CR [Concomitant]
     Dosage: UNK
  5. KLONOPIN [Concomitant]
     Dosage: UNK

REACTIONS (10)
  - CONSTIPATION [None]
  - DYSGEUSIA [None]
  - ANXIETY [None]
  - FEELING ABNORMAL [None]
  - DIZZINESS [None]
  - INSOMNIA [None]
  - MEMORY IMPAIRMENT [None]
  - WEIGHT INCREASED [None]
  - SUICIDAL IDEATION [None]
  - HYPERSOMNIA [None]
